FAERS Safety Report 15491172 (Version 1)
Quarter: 2018Q4

REPORT INFORMATION
  Report Type: Report from Study
  Country: US (occurrence: US)
  Receive Date: 20181012
  Receipt Date: 20181012
  Transmission Date: 20190205
  Serious: Yes (Other)
  Sender: FDA-Public Use
  Company Number: US-ROCHE-2191597

PATIENT
  Sex: Female

DRUGS (1)
  1. ESBRIET [Suspect]
     Active Substance: PIRFENIDONE
     Indication: IDIOPATHIC PULMONARY FIBROSIS
     Route: 065

REACTIONS (8)
  - Depressed mood [Unknown]
  - Hallucination [Unknown]
  - Malaise [Unknown]
  - Headache [Unknown]
  - Productive cough [Unknown]
  - Suicidal ideation [Unknown]
  - Abdominal pain upper [Unknown]
  - Abdominal discomfort [Unknown]
